FAERS Safety Report 5832801-7 (Version None)
Quarter: 2008Q3

REPORT INFORMATION
  Report Type: 
  Country: None (occurrence: None)
  Receive Date: 20080804
  Receipt Date: 20080723
  Transmission Date: 20090109
  Serious: Yes (Hospitalization)
  Sender: FDA-Public Use
  Company Number: GB-ROCHE-577548

PATIENT
  Age: 10 Month
  Sex: Female

DRUGS (3)
  1. CEFTRIAXONE SODIUM [Suspect]
     Indication: ANTIBIOTIC THERAPY
     Route: 042
  2. SODIUM CHLORIDE [Concomitant]
     Dosage: BOLUS
  3. HUMAN ALBUMIN SOLUTION [Concomitant]
     Dosage: BOLUS

REACTIONS (1)
  - HAEMOLYTIC URAEMIC SYNDROME [None]
